FAERS Safety Report 13244451 (Version 1)
Quarter: 2017Q1

REPORT INFORMATION
  Report Type: Spontaneous
  Country: US (occurrence: US)
  Receive Date: 20170216
  Receipt Date: 20170216
  Transmission Date: 20170428
  Serious: No
  Sender: FDA-Public Use
  Company Number: US-JAZZ-2017-US-000172

PATIENT
  Sex: Female
  Weight: 77.98 kg

DRUGS (18)
  1. XYREM [Suspect]
     Active Substance: SODIUM OXYBATE
     Dosage: 4.5 G, BID
     Route: 048
     Dates: start: 201509
  2. BACLOFEN. [Concomitant]
     Active Substance: BACLOFEN
  3. TRAMADOL. [Concomitant]
     Active Substance: TRAMADOL
  4. PRISTIQ EXTENDED-RELEASE [Concomitant]
     Active Substance: DESVENLAFAXINE SUCCINATE
  5. IMITREX [Concomitant]
     Active Substance: SUMATRIPTAN SUCCINATE
  6. SUMAVEL DOSEPRO [Concomitant]
     Active Substance: SUMATRIPTAN SUCCINATE
  7. DOCUSATE SODIUM. [Concomitant]
     Active Substance: DOCUSATE SODIUM
  8. XYREM [Suspect]
     Active Substance: SODIUM OXYBATE
     Dosage: DOSE ADJUSTMENT
     Route: 048
     Dates: start: 2015, end: 2015
  9. BOTOX [Concomitant]
     Active Substance: ONABOTULINUMTOXINA
  10. XANAX [Concomitant]
     Active Substance: ALPRAZOLAM
  11. BYSTOLIC [Concomitant]
     Active Substance: NEBIVOLOL HYDROCHLORIDE
  12. ADDERALL [Concomitant]
     Active Substance: AMPHETAMINE ASPARTATE\AMPHETAMINE SULFATE\DEXTROAMPHETAMINE SACCHARATE\DEXTROAMPHETAMINE SULFATE
  13. XYREM [Suspect]
     Active Substance: SODIUM OXYBATE
     Indication: SLEEP DISORDER
     Dosage: 2.25G, BID
     Route: 048
     Dates: start: 201504, end: 2015
  14. LYRICA [Concomitant]
     Active Substance: PREGABALIN
  15. PERCOCET                           /00446701/ [Concomitant]
     Active Substance: ACETAMINOPHEN\OXYCODONE HYDROCHLORIDE\OXYCODONE TEREPHTHALATE
  16. PLAQUENIL                          /00072602/ [Concomitant]
     Active Substance: HYDROXYCHLOROQUINE DIPHOSPHATE
  17. TOPIRAMATE. [Concomitant]
     Active Substance: TOPIRAMATE
  18. DUEXIS [Concomitant]
     Active Substance: FAMOTIDINE\IBUPROFEN

REACTIONS (5)
  - Fibromyalgia [Recovered/Resolved]
  - Stress [Recovered/Resolved]
  - Migraine [Recovered/Resolved]
  - Sleep disorder [Recovered/Resolved]
  - Fatigue [Recovered/Resolved]
